FAERS Safety Report 4479039-6 (Version None)
Quarter: 2004Q4

REPORT INFORMATION
  Report Type: 
  Country: None (occurrence: None)
  Receive Date: 20040923
  Receipt Date: 20040812
  Transmission Date: 20050328
  Serious: No
  Sender: FDA-Public Use
  Company Number: 208399

PATIENT
  Age: 54 Year
  Sex: Male
  Weight: 61.2 kg

DRUGS (17)
  1. AVASTIN [Suspect]
     Indication: COLON CANCER
     Dosage: 600 MG, Q2W, INTRAVENOUS
     Route: 042
     Dates: start: 20040422
  2. CAMPTOSAR [Concomitant]
  3. FLUOROURACIL [Concomitant]
  4. LEUCOVORIN (LEUCOVORIN CALCIUM) [Concomitant]
  5. DECADRON [Concomitant]
  6. ALOXI (PALONOSETRON) [Concomitant]
  7. LASIX [Concomitant]
  8. LOMITIL (DIPHENOXYLATE HYDROCHLORIDE, ATROPINE SULFATE) [Concomitant]
  9. TEMAZEPAM [Concomitant]
  10. ATIVAN [Concomitant]
  11. VICODIN (ACETAMINPHEN, HYDROCHLORIDE BITARTRATE) [Concomitant]
  12. CENTRUM (MINERALS NOS, MULTIVITAMINS NOS) [Concomitant]
  13. IRON (IRON NOS) [Concomitant]
  14. PEPCID [Concomitant]
  15. METAMUCIL (PSYLLIUM HUSK) [Concomitant]
  16. MARINOL [Concomitant]
  17. COUMADIN [Concomitant]

REACTIONS (2)
  - BEREAVEMENT REACTION [None]
  - DEPRESSION [None]
